FAERS Safety Report 4982058-4 (Version None)
Quarter: 2006Q2

REPORT INFORMATION
  Report Type: 
  Country: None (occurrence: None)
  Receive Date: 20060425
  Receipt Date: 20051005
  Transmission Date: 20061013
  Serious: Yes (Hospitalization)
  Sender: FDA-Public Use
  Company Number: US-MERCK-0510USA05527

PATIENT
  Age: 49 Year
  Sex: Male
  Weight: 123 kg

DRUGS (8)
  1. VIOXX [Suspect]
     Indication: ARTHRITIS
     Route: 048
     Dates: start: 19990801, end: 20041001
  2. VIOXX [Suspect]
     Route: 048
     Dates: start: 20030819, end: 20041001
  3. ADVIL [Concomitant]
     Route: 065
  4. ZOLOFT [Concomitant]
     Route: 065
  5. VERELAN [Concomitant]
     Route: 048
  6. NEXIUM [Concomitant]
     Route: 048
  7. ASPIRIN [Concomitant]
     Route: 048
  8. GLUCOSAMINE [Concomitant]
     Route: 048

REACTIONS (19)
  - ANAEMIA [None]
  - ANGINA PECTORIS [None]
  - ANGINA UNSTABLE [None]
  - ARTERIOSCLEROSIS CORONARY ARTERY [None]
  - ARTHRALGIA [None]
  - ARTHRITIS [None]
  - ATRIOVENTRICULAR BLOCK [None]
  - BRONCHITIS [None]
  - CALCULUS URETERIC [None]
  - CALCULUS URINARY [None]
  - CHEST PAIN [None]
  - CONTUSION [None]
  - FLUID RETENTION [None]
  - MENISCUS LESION [None]
  - MUSCULOSKELETAL CHEST PAIN [None]
  - NAUSEA [None]
  - NEPHROLITHIASIS [None]
  - PNEUMONIA [None]
  - VENTRICULAR EXTRASYSTOLES [None]
